FAERS Safety Report 12508144 (Version 1)
Quarter: 2016Q2

REPORT INFORMATION
  Report Type: Report from Study
  Country: JP (occurrence: JP)
  Receive Date: 20160629
  Receipt Date: 20160629
  Transmission Date: 20160815
  Serious: Yes (Hospitalization, Other)
  Sender: FDA-Public Use
  Company Number: JP-AMGEN-JPNNI2016083777

PATIENT
  Age: 59 Year
  Sex: Female

DRUGS (2)
  1. ROCALTROL [Suspect]
     Active Substance: CALCITRIOL
     Indication: PRODUCT USED FOR UNKNOWN INDICATION
     Dosage: UNK
     Route: 042
     Dates: start: 20150209
  2. CINACALCET HCL [Suspect]
     Active Substance: CINACALCET HYDROCHLORIDE
     Indication: PRODUCT USED FOR UNKNOWN INDICATION
     Dosage: UNK
     Route: 048
     Dates: start: 20150216

REACTIONS (3)
  - Diabetic retinopathy [Recovering/Resolving]
  - Hospitalisation [Recovering/Resolving]
  - Cataract [Recovering/Resolving]

NARRATIVE: CASE EVENT DATE: 20151028
